FAERS Safety Report 16570694 (Version 1)
Quarter: 2019Q3

REPORT INFORMATION
  Report Type: Spontaneous
  Country: US (occurrence: US)
  Receive Date: 20190531
  Receipt Date: 20190531
  Transmission Date: 20191004
  Serious: Yes (Hospitalization)
  Sender: FDA-Public Use
  Company Number: None

PATIENT
  Age: 84 Year
  Sex: Male
  Weight: 88.13 kg

DRUGS (1)
  1. DABIGATRAN [Suspect]
     Active Substance: DABIGATRAN
     Indication: ATRIAL FIBRILLATION
     Route: 048
     Dates: start: 20140905, end: 20190312

REACTIONS (4)
  - Haematuria [None]
  - Palpitations [None]
  - Haemorrhage [None]
  - Hydronephrosis [None]

NARRATIVE: CASE EVENT DATE: 20190312
